FAERS Safety Report 19978514 (Version 1)
Quarter: 2021Q4

REPORT INFORMATION
  Report Type: Spontaneous
  Country: US (occurrence: US)
  Receive Date: 20211016
  Receipt Date: 20211016
  Transmission Date: 20220304
  Serious: Yes (Life-Threatening)
  Sender: FDA-Public Use
  Company Number: None

PATIENT
  Age: 67 Year
  Sex: Male
  Weight: 90 kg

DRUGS (9)
  1. REGEN-COV [Suspect]
     Active Substance: CASIRIVIMAB\IMDEVIMAB
     Indication: COVID-19
     Route: 042
     Dates: start: 20210928, end: 20210928
  2. PREDNISONE [Concomitant]
     Active Substance: PREDNISONE
  3. CEFUROXIME [Concomitant]
     Active Substance: CEFUROXIME
  4. MULTIPLE VITAMINS WITH EXTRA C, D [Concomitant]
  5. ZINC [Concomitant]
     Active Substance: ZINC
  6. MUCINEX [Concomitant]
     Active Substance: GUAIFENESIN
  7. TYLENOL [Concomitant]
     Active Substance: ACETAMINOPHEN
  8. IBUPROFEN [Concomitant]
     Active Substance: IBUPROFEN
  9. ASPIRIN [Concomitant]
     Active Substance: ASPIRIN

REACTIONS (4)
  - Chills [None]
  - Pyrexia [None]
  - Paranasal sinus hypersecretion [None]
  - Pneumonia [None]

NARRATIVE: CASE EVENT DATE: 20210928
